FAERS Safety Report 21911866 (Version 5)
Quarter: 2023Q2

REPORT INFORMATION
  Report Type: Report from Study
  Country: US (occurrence: US)
  Receive Date: 20230125
  Receipt Date: 20230428
  Transmission Date: 20230721
  Serious: Yes (Other)
  Sender: FDA-Public Use
  Company Number: US-GILEAD-2023-0614077

PATIENT
  Sex: Male

DRUGS (5)
  1. AZTREONAM LYSINE [Interacting]
     Active Substance: AZTREONAM LYSINE
     Indication: Cystic fibrosis
     Dosage: 75 MG, TID
     Route: 055
     Dates: start: 20220302
  2. AZTREONAM LYSINE [Interacting]
     Active Substance: AZTREONAM LYSINE
     Indication: Pseudomonas infection
     Dosage: UNK UNK, TID
     Route: 055
     Dates: start: 20220303, end: 20221231
  3. AZTREONAM LYSINE [Interacting]
     Active Substance: AZTREONAM LYSINE
     Dosage: 75 MG, TID, INHALE THE CONTENTS OF 1 VIAL THREE TIMES DAILY VIA NEBULIZER FOR 28 DAYS ON, 28 DAYS OF
     Route: 055
     Dates: start: 20220304, end: 20221231
  4. AZTREONAM LYSINE [Interacting]
     Active Substance: AZTREONAM LYSINE
     Dosage: UNK UNK, TID
     Route: 065
     Dates: start: 20220302, end: 20221129
  5. METFORMIN [Interacting]
     Active Substance: METFORMIN HYDROCHLORIDE
     Indication: Product used for unknown indication
     Route: 065

REACTIONS (4)
  - Pneumonia [Unknown]
  - Cough [Not Recovered/Not Resolved]
  - Taste disorder [Unknown]
  - Drug interaction [Unknown]
